FAERS Safety Report 17283241 (Version 3)
Quarter: 2020Q2

REPORT INFORMATION
  Report Type: Report from Study
  Country: KR (occurrence: KR)
  Receive Date: 20200117
  Receipt Date: 20200612
  Transmission Date: 20200713
  Serious: Yes (Other)
  Sender: FDA-Public Use
  Company Number: KR-GLAXOSMITHKLINE-KR2020GSK005205

PATIENT
  Age: 72 Year
  Sex: Male
  Weight: 47 kg

DRUGS (6)
  1. METHYSOL [Concomitant]
     Dosage: 125 MG
     Route: 042
  2. MUCOMYST [Concomitant]
     Active Substance: ACETYLCYSTEINE
     Dosage: 1 ML
  3. ATROVENT [Concomitant]
     Active Substance: IPRATROPIUM BROMIDE
     Dosage: 500 UG
  4. UMECLIDINIUM BR+VILANTEROL TRIFENATATE [Suspect]
     Active Substance: UMECLIDINIUM BROMIDE\VILANTEROL TRIFENATATE
     Indication: CHRONIC OBSTRUCTIVE PULMONARY DISEASE
     Dosage: 1 PUFF(S), QD
     Route: 055
     Dates: start: 20190806
  5. PULMICAN [Concomitant]
     Dosage: 0.25 MG
  6. VENTOLIN [Concomitant]
     Active Substance: ALBUTEROL SULFATE
     Dosage: 2.5 MG

REACTIONS (1)
  - Chronic obstructive pulmonary disease [Recovered/Resolved]

NARRATIVE: CASE EVENT DATE: 20200106
